FAERS Safety Report 5021150-5 (Version None)
Quarter: 2006Q2

REPORT INFORMATION
  Report Type: 
  Country: None (occurrence: None)
  Receive Date: 20060607
  Receipt Date: 20060607
  Transmission Date: 20061013
  Serious: Yes (Other)
  Sender: FDA-Public Use
  Company Number: None

PATIENT
  Sex: Female
  Weight: 129.638 kg

DRUGS (3)
  1. OXYCONTIN [Suspect]
     Indication: BACK PAIN
  2. OXYCONTIN [Suspect]
     Indication: PAIN
  3. OXYCONTIN [Suspect]
     Indication: PAIN IN EXTREMITY

REACTIONS (1)
  - DRUG INEFFECTIVE [None]
